FAERS Safety Report 18935650 (Version 1)
Quarter: 2021Q1

REPORT INFORMATION
  Report Type: Spontaneous
  Country: FR (occurrence: FR)
  Receive Date: 20210224
  Receipt Date: 20210224
  Transmission Date: 20210420
  Serious: Yes (Hospitalization, Other)
  Sender: FDA-Public Use
  Company Number: FR-PFIZER INC-2021145946

PATIENT
  Age: 61 Year
  Sex: Male

DRUGS (6)
  1. ABRAXANE [Suspect]
     Active Substance: PACLITAXEL
     Indication: DUCTAL ADENOCARCINOMA OF PANCREAS
     Dosage: 100 MG/M2, DAILY CYCLIC GIVEN ON THE WEEK 1, 2, AND 3 OF EACH TREATMENT CYCLE
     Route: 042
     Dates: start: 20200528, end: 20200821
  2. L?ASPARAGINASE MEDAC [Suspect]
     Active Substance: ASPARAGINASE
     Indication: DUCTAL ADENOCARCINOMA OF PANCREAS
     Dosage: 100 IU/KG, CYCLIC GIVEN ON THE WEEK 1, 2 AND 3 OF EACH TREATMENT CYCLE
     Route: 042
     Dates: start: 20200528, end: 20200814
  3. GEMCITABINE HYDROCHLORIDE. [Suspect]
     Active Substance: GEMCITABINE HYDROCHLORIDE
     Dosage: 800 MG/M2, 1X/DAY
     Route: 042
     Dates: start: 20200916, end: 20200916
  4. ABRAXANE [Suspect]
     Active Substance: PACLITAXEL
     Dosage: 100 MG/M2, DAILY CYCLIC GIVEN ON THE WEEK 1, 2 AND 3 OF EACH TREATMENT CYCLE
     Route: 042
     Dates: start: 20200916, end: 20200916
  5. GEMCITABINE HYDROCHLORIDE. [Suspect]
     Active Substance: GEMCITABINE HYDROCHLORIDE
     Indication: DUCTAL ADENOCARCINOMA OF PANCREAS
     Dosage: 800 MG/M2, DAILY CYCLIC GIVEN ON THE WEEK 1, 2 AND 3 OF EACH TREATMENT CYCLE
     Route: 042
     Dates: start: 20200528, end: 20200821
  6. L?ASPARAGINASE MEDAC [Suspect]
     Active Substance: ASPARAGINASE
     Dosage: 100 IU/KG, CYCLIC GIVEN ON THE WEEK 1, 2 AND 3 OF EACH TREATMENT CYCLE
     Route: 042
     Dates: start: 20200916, end: 20200916

REACTIONS (3)
  - Pancytopenia [Recovered/Resolved]
  - Gastrointestinal obstruction [Recovered/Resolved]
  - Sepsis [Recovered/Resolved]

NARRATIVE: CASE EVENT DATE: 20200828
